FAERS Safety Report 14180884 (Version 1)
Quarter: 2017Q4

REPORT INFORMATION
  Report Type: Spontaneous
  Country: US (occurrence: US)
  Receive Date: 20171110
  Receipt Date: 20171110
  Transmission Date: 20180321
  Serious: Yes (Hospitalization)
  Sender: FDA-Public Use
  Company Number: US-BEH-2017084985

PATIENT
  Age: 78 Year
  Sex: Male
  Weight: 66.67 kg

DRUGS (28)
  1. FISH OIL [Concomitant]
     Active Substance: FISH OIL
  2. ASPIRIN (E.C.) [Concomitant]
     Active Substance: ASPIRIN
  3. PREDNISONE. [Concomitant]
     Active Substance: PREDNISONE
  4. NITROGLYCERIN. [Concomitant]
     Active Substance: NITROGLYCERIN
  5. HIZENTRA [Suspect]
     Active Substance: HUMAN IMMUNOGLOBULIN G
     Indication: IMMUNODEFICIENCY COMMON VARIABLE
     Dosage: 8 G, UNK
     Route: 058
     Dates: start: 20110127
  6. SPIRIVA [Concomitant]
     Active Substance: TIOTROPIUM BROMIDE MONOHYDRATE
  7. MAGNESIUM OXIDE. [Concomitant]
     Active Substance: MAGNESIUM OXIDE
  8. AZITHROMYCIN ANHYDROUS. [Concomitant]
     Active Substance: AZITHROMYCIN ANHYDROUS
  9. HYDROCHLOROTHIAZIDE. [Concomitant]
     Active Substance: HYDROCHLOROTHIAZIDE
  10. AVAPRO [Concomitant]
     Active Substance: IRBESARTAN
  11. METFORMIN [Concomitant]
     Active Substance: METFORMIN HYDROCHLORIDE
  12. ALBUTEROL                          /00139501/ [Concomitant]
     Active Substance: ALBUTEROL
  13. VITAMIN C [Concomitant]
     Active Substance: ASCORBIC ACID
  14. EPINEPHRINE. [Concomitant]
     Active Substance: EPINEPHRINE
  15. HIZENTRA [Suspect]
     Active Substance: HUMAN IMMUNOGLOBULIN G
     Indication: HYPOGAMMAGLOBULINAEMIA
     Dosage: UNK
     Route: 058
  16. FIBERCON [Concomitant]
     Active Substance: CALCIUM POLYCARBOPHIL
  17. VITAMIN B12 [Concomitant]
     Active Substance: CYANOCOBALAMIN
  18. LIPITOR [Concomitant]
     Active Substance: ATORVASTATIN CALCIUM
  19. PRANDIN                            /00882701/ [Concomitant]
     Active Substance: DEFLAZACORT
  20. CENTRUM SILVER                     /02363801/ [Concomitant]
     Active Substance: MINERALS\VITAMINS
  21. SINGULAIR [Concomitant]
     Active Substance: MONTELUKAST SODIUM
  22. ADVAIR HFA [Concomitant]
     Active Substance: FLUTICASONE PROPIONATE\SALMETEROL XINAFOATE
  23. FENOFIBRATE. [Concomitant]
     Active Substance: FENOFIBRATE
  24. JANUVIA [Concomitant]
     Active Substance: SITAGLIPTIN PHOSPHATE
  25. TOPROL XL [Concomitant]
     Active Substance: METOPROLOL SUCCINATE
  26. OXYGEN. [Concomitant]
     Active Substance: OXYGEN
  27. FERROUS SULFATE. [Concomitant]
     Active Substance: FERROUS SULFATE
  28. PROTONIX [Concomitant]
     Active Substance: PANTOPRAZOLE SODIUM

REACTIONS (2)
  - Dyspnoea [Unknown]
  - Chest pain [Unknown]

NARRATIVE: CASE EVENT DATE: 20171103
